FAERS Safety Report 24282134 (Version 1)
Quarter: 2024Q3

REPORT INFORMATION
  Report Type: Spontaneous
  Country: GB (occurrence: GB)
  Receive Date: 20240904
  Receipt Date: 20240904
  Transmission Date: 20241017
  Serious: Yes (Other)
  Sender: RECKITT BENCKISER
  Company Number: None

PATIENT

DRUGS (2)
  1. SUBOXONE [Suspect]
     Active Substance: BUPRENORPHINE HYDROCHLORIDE\NALOXONE HYDROCHLORIDE
     Indication: Drug use disorder
     Dosage: 24 MILLIGRAM, UNKNOWN
     Route: 065
     Dates: start: 20180827
  2. SEROQUEL [Concomitant]
     Active Substance: QUETIAPINE FUMARATE
     Indication: Product used for unknown indication
     Dosage: 300 MILLIGRAM, UNK
     Route: 065
     Dates: start: 19980505

REACTIONS (3)
  - Superficial vein thrombosis [Not Recovered/Not Resolved]
  - Skin atrophy [Unknown]
  - Pruritus [Unknown]

NARRATIVE: CASE EVENT DATE: 20240204
